FAERS Safety Report 9335241 (Version 1)
Quarter: 2013Q2

REPORT INFORMATION
  Report Type: Spontaneous
  Country: GB (occurrence: GB)
  Receive Date: 20130606
  Receipt Date: 20130606
  Transmission Date: 20140414
  Serious: Yes (Disabling)
  Sender: FDA-Public Use
  Company Number: GB-UCBSA-087306

PATIENT
  Age: 30 Year
  Sex: Female

DRUGS (2)
  1. KEPPRA [Suspect]
     Dates: start: 2011, end: 20130406
  2. CARBAMAZEPINE [Concomitant]
     Indication: EPILEPSY
     Dosage: 400 MG+ 600 MG
     Route: 048

REACTIONS (4)
  - Obsessive-compulsive disorder [Recovered/Resolved]
  - Illusion [Recovered/Resolved]
  - Negative thoughts [Recovered/Resolved]
  - Weight decreased [Recovered/Resolved]
